FAERS Safety Report 12681338 (Version 2)
Quarter: 2017Q3

REPORT INFORMATION
  Report Type: Spontaneous
  Country: US (occurrence: US)
  Receive Date: 20160824
  Receipt Date: 20170918
  Transmission Date: 20171127
  Serious: Yes (Death)
  Sender: FDA-Public Use
  Company Number: US-SIGMA-TAU US-2016STPI000609

PATIENT
  Age: 69 Year
  Sex: Male

DRUGS (1)
  1. MATULANE [Suspect]
     Active Substance: PROCARBAZINE HYDROCHLORIDE
     Indication: T-CELL LYMPHOMA
     Dosage: 50 MG, QD
     Route: 048
     Dates: start: 201607

REACTIONS (1)
  - Death [Fatal]

NARRATIVE: CASE EVENT DATE: 20160809
